FAERS Safety Report 7085754-0 (Version None)
Quarter: 2010Q4

REPORT INFORMATION
  Report Type: 
  Country: None (occurrence: None)
  Receive Date: 20101105
  Receipt Date: 20101026
  Transmission Date: 20110411
  Serious: Yes (Hospitalization)
  Sender: FDA-Public Use
  Company Number: DE-NOVOPROD-310579

PATIENT
  Age: 52 Year
  Sex: Female
  Weight: 130 kg

DRUGS (7)
  1. ACTRAPID [Suspect]
     Indication: TYPE 2 DIABETES MELLITUS
     Dosage: UNK
     Route: 058
     Dates: start: 20060101, end: 20080930
  2. LANTUS [Suspect]
     Indication: TYPE 2 DIABETES MELLITUS
     Dosage: UNK
     Route: 058
     Dates: start: 20080701, end: 20080930
  3. METFORMIN HCL [Interacting]
     Dosage: UNK
     Route: 048
     Dates: start: 20080701, end: 20080930
  4. ZOP [Concomitant]
     Dosage: UNK
     Route: 048
     Dates: start: 20080101
  5. ASPIRIN [Concomitant]
     Dosage: UNK
     Route: 048
     Dates: start: 20060101
  6. LOCOL [Concomitant]
     Dosage: UNK
     Route: 048
     Dates: start: 20060101
  7. FUROSEMIDE [Concomitant]
     Dosage: UNK
     Route: 048
     Dates: start: 20070101

REACTIONS (7)
  - AGITATION [None]
  - CONTUSION [None]
  - DEPRESSION [None]
  - FALL [None]
  - HYPERKALAEMIA [None]
  - HYPOGLYCAEMIA [None]
  - SLEEP DISORDER [None]
